FAERS Safety Report 13984241 (Version 1)
Quarter: 2017Q3

REPORT INFORMATION
  Report Type: Spontaneous
  Country: GB (occurrence: GB)
  Receive Date: 20170918
  Receipt Date: 20170918
  Transmission Date: 20171128
  Serious: Yes (Hospitalization)
  Sender: FDA-Public Use
  Company Number: GB-PFIZER INC-2017396804

PATIENT
  Age: 47 Year
  Sex: Female

DRUGS (2)
  1. SOLU-CORTEF [Suspect]
     Active Substance: HYDROCORTISONE SODIUM SUCCINATE
     Indication: HYPERSENSITIVITY
     Dosage: 100 MG, UNK
     Route: 030
     Dates: start: 20170809, end: 20170809
  2. WATER FOR INJECTION [Concomitant]
     Active Substance: WATER
     Dosage: 2 ML, UNK
     Route: 030
     Dates: start: 20170809, end: 20170809

REACTIONS (1)
  - Injection site pain [Recovering/Resolving]

NARRATIVE: CASE EVENT DATE: 20170809
